FAERS Safety Report 15751935 (Version 1)
Quarter: 2018Q4

REPORT INFORMATION
  Report Type: Spontaneous
  Country: FR (occurrence: FR)
  Receive Date: 20181221
  Receipt Date: 20181221
  Transmission Date: 20190205
  Serious: Yes (Other)
  Sender: FDA-Public Use
  Company Number: FR-INDIVIOR LIMITED-INDV-116483-2018

PATIENT
  Age: 43 Year
  Sex: Male

DRUGS (2)
  1. SERESTA [Suspect]
     Active Substance: OXAZEPAM
     Indication: DRUG USE DISORDER
     Dosage: 20 DF, IN TOTAL
     Route: 048
     Dates: start: 20180603, end: 20180603
  2. SUBUTEX [Suspect]
     Active Substance: BUPRENORPHINE HYDROCHLORIDE
     Indication: DRUG USE DISORDER
     Dosage: 1DF, AS NECESSARY
     Route: 060
     Dates: start: 20180603, end: 20180603

REACTIONS (3)
  - Condition aggravated [Not Recovered/Not Resolved]
  - Somnolence [Recovered/Resolved]
  - Drug use disorder [Not Recovered/Not Resolved]

NARRATIVE: CASE EVENT DATE: 20180603
